FAERS Safety Report 18478285 (Version 1)
Quarter: 2020Q4

REPORT INFORMATION
  Report Type: Spontaneous
  Country: US (occurrence: US)
  Receive Date: 20201109
  Receipt Date: 20201109
  Transmission Date: 20210114
  Serious: Yes (Hospitalization, Other)
  Sender: FDA-Public Use
  Company Number: US-009507513-2011USA000156

PATIENT
  Age: 24280 Day
  Sex: Male
  Weight: 158.8 kg

DRUGS (14)
  1. CENTRUM (MINERALS (UNSPECIFIED) (+) VITAMINS (UNSPECIFIED)) [Concomitant]
     Active Substance: MINERALS\VITAMINS
     Dosage: UNK UNK, QD
     Route: 048
  2. METOPROLOL SUCCINATE. [Suspect]
     Active Substance: METOPROLOL SUCCINATE
     Dosage: 50  DAILY
     Route: 048
  3. NITROSTAT [Concomitant]
     Active Substance: NITROGLYCERIN
     Indication: CHEST PAIN
     Dosage: UNIT REPORTED AS MILLIGRAM, PRN
     Route: 060
  4. VICTOZA [Concomitant]
     Active Substance: LIRAGLUTIDE
     Dosage: 2 MILLIGRAM, QD
     Route: 058
  5. METFORMIN HYDROCHLORIDE. [Concomitant]
     Active Substance: METFORMIN HYDROCHLORIDE
     Dosage: 500 AT NIGHT
     Route: 048
  6. ZOCOR [Concomitant]
     Active Substance: SIMVASTATIN
     Dosage: 80 AT NIGHT
     Route: 048
  7. AMOXICILLIN (+) CLAVULANATE POTASSIUM [Concomitant]
     Active Substance: AMOXICILLIN\CLAVULANATE POTASSIUM
     Dosage: MILLIGRAM, EVERY 12 HOURS
  8. AMLODIPINE BESYLATE. [Concomitant]
     Active Substance: AMLODIPINE BESYLATE
     Dosage: 5 MILLIGRAM, QD
     Route: 048
  9. ASCORBIC ACID. [Concomitant]
     Active Substance: ASCORBIC ACID
     Dosage: 1000 MILLIGRAM, QD
     Route: 048
  10. NOVOLOG [Concomitant]
     Active Substance: INSULIN ASPART
     Dosage: 12 HOURS
     Route: 058
  11. PRINIVIL [Suspect]
     Active Substance: LISINOPRIL
     Dosage: 40 MILLIGRAM, QD
     Route: 048
  12. FARXIGA [Suspect]
     Active Substance: DAPAGLIFLOZIN PROPANEDIOL
     Indication: TYPE 2 DIABETES MELLITUS
     Dosage: 10 MILLIGRAM, QD
     Route: 048
     Dates: start: 201812, end: 2019
  13. SERTRALINE HYDROCHLORIDE. [Concomitant]
     Active Substance: SERTRALINE HYDROCHLORIDE
     Dosage: 50 MILLIGRAM, QD
     Route: 048
  14. ASPIRIN. [Concomitant]
     Active Substance: ASPIRIN
     Dosage: 325 MILLIGRAM, QD
     Route: 048

REACTIONS (14)
  - Perirectal abscess [Unknown]
  - Diabetes mellitus inadequate control [Unknown]
  - Fournier^s gangrene [Recovered/Resolved]
  - Diarrhoea [Unknown]
  - Glycosylated haemoglobin increased [Unknown]
  - Neuropathy peripheral [Unknown]
  - Blood pressure decreased [Unknown]
  - Type 2 diabetes mellitus [Unknown]
  - Somnolence [Unknown]
  - Hypocholesterolaemia [Unknown]
  - Fatigue [Unknown]
  - Hypertension [Unknown]
  - Depression [Unknown]
  - Coronary artery disease [Unknown]

NARRATIVE: CASE EVENT DATE: 20190210
